FAERS Safety Report 19615107 (Version 1)
Quarter: 2021Q3

REPORT INFORMATION
  Report Type: Spontaneous
  Country: None (occurrence: US)
  Receive Date: 20210727
  Receipt Date: 20210727
  Transmission Date: 20211014
  Serious: No
  Sender: FDA-Public Use
  Company Number: US-B.BRAUN MEDICAL INC.-2114324

PATIENT
  Age: 70 Year
  Sex: Female

DRUGS (2)
  1. HEPARIN SODIUM IN DEXTROSE [Suspect]
     Active Substance: HEPARIN SODIUM
     Route: 042
  2. PROTAMINE SULFATE. [Concomitant]
     Active Substance: PROTAMINE SULFATE

REACTIONS (2)
  - Wrong product administered [None]
  - Activated partial thromboplastin time prolonged [None]
